FAERS Safety Report 20757325 (Version 1)
Quarter: 2022Q2

REPORT INFORMATION
  Report Type: Spontaneous
  Country: US (occurrence: None)
  Receive Date: 20220427
  Receipt Date: 20220427
  Transmission Date: 20220721
  Serious: No
  Sender: FDA-Public Use
  Company Number: None

PATIENT
  Age: 35 Year
  Sex: Female
  Weight: 86.0 kg

DRUGS (13)
  1. WELIREG [Suspect]
     Active Substance: BELZUTIFAN
     Indication: Cervix carcinoma
     Dosage: FREQUENCY : DAILY;?
     Route: 048
  2. CIPROFLOXACIN [Concomitant]
     Active Substance: CIPROFLOXACIN
  3. FENTANYL [Concomitant]
     Active Substance: FENTANYL
  4. GABAPENTIN [Concomitant]
     Active Substance: GABAPENTIN
  5. JUNEL [Concomitant]
     Active Substance: ETHINYL ESTRADIOL\NORETHINDRONE ACETATE
  6. LEXAPRO [Concomitant]
     Active Substance: ESCITALOPRAM OXALATE
  7. LORAZEPAM [Concomitant]
     Active Substance: LORAZEPAM
  8. MECLIZINE [Concomitant]
     Active Substance: MECLIZINE HYDROCHLORIDE
  9. METFORMIN [Concomitant]
     Active Substance: METFORMIN HYDROCHLORIDE
  10. NADOLOL [Concomitant]
     Active Substance: NADOLOL
  11. PERCOCET [Concomitant]
     Active Substance: ACETAMINOPHEN\OXYCODONE HYDROCHLORIDE
  12. TYLENOL [Concomitant]
     Active Substance: ACETAMINOPHEN
  13. ZOFRAN [Concomitant]
     Active Substance: ONDANSETRON HYDROCHLORIDE

REACTIONS (4)
  - Abdominal pain [None]
  - Fatigue [None]
  - Asthenia [None]
  - Full blood count abnormal [None]
